FAERS Safety Report 18456765 (Version 1)
Quarter: 2020Q4

REPORT INFORMATION
  Report Type: Spontaneous
  Country: US (occurrence: US)
  Receive Date: 20201102
  Receipt Date: 20201102
  Transmission Date: 20210114
  Serious: Yes (Hospitalization)
  Sender: FDA-Public Use
  Company Number: None

PATIENT
  Sex: Female

DRUGS (12)
  1. GLATIRAMER [Suspect]
     Active Substance: GLATIRAMER
     Indication: MULTIPLE SCLEROSIS
     Dosage: ?          OTHER FREQUENCY:3 TIMES PER WEEK;?
     Route: 058
     Dates: start: 20171019
  2. CALCIUM [Concomitant]
     Active Substance: CALCIUM
  3. BUPROPION. [Concomitant]
     Active Substance: BUPROPION
  4. TOPIRAMATE. [Concomitant]
     Active Substance: TOPIRAMATE
  5. SYNTHROID [Concomitant]
     Active Substance: LEVOTHYROXINE SODIUM
  6. ESCITALOPRAM [Concomitant]
     Active Substance: ESCITALOPRAM OXALATE
  7. CRANBERRY. [Concomitant]
     Active Substance: CRANBERRY
  8. VITAMIN D3 [Concomitant]
     Active Substance: CHOLECALCIFEROL
  9. NEURONTIN [Concomitant]
     Active Substance: GABAPENTIN
  10. PROBIOTIC [Concomitant]
     Active Substance: PROBIOTICS NOS
  11. MACROBID [Concomitant]
     Active Substance: NITROFURANTOIN\NITROFURANTOIN MONOHYDRATE
  12. FISH OIL [Concomitant]
     Active Substance: FISH OIL

REACTIONS (1)
  - Hospitalisation [None]
